FAERS Safety Report 16432058 (Version 13)
Quarter: 2022Q2

REPORT INFORMATION
  Report Type: Report from Study
  Country: US (occurrence: None)
  Receive Date: 20190614
  Receipt Date: 20220401
  Transmission Date: 20220721
  Serious: Yes (Hospitalization)
  Sender: FDA-Public Use
  Company Number: US-ROCHE-2335289

PATIENT
  Age: 51 Year
  Sex: Female
  Weight: 49.8 kg

DRUGS (32)
  1. POLATUZUMAB VEDOTIN [Suspect]
     Active Substance: POLATUZUMAB VEDOTIN
     Indication: Diffuse large B-cell lymphoma
     Dosage: MOST RECENT DOSE (95 MG) PRIOR TO THE SAE ONSET ON 30/JUL/2019?LAST RECEIVED: 19/JUN/2019
     Route: 042
     Dates: start: 20190530
  2. PLACEBO [Suspect]
     Active Substance: UNSPECIFIED INGREDIENT
     Indication: Diffuse large B-cell lymphoma
     Dosage: MOST RECENT DOSE PRIOR TO SAE ONSET ON 31/MAY/2019?LAST RECEIVED: 19/JUN/2019
     Route: 042
     Dates: start: 20190531
  3. RITUXIMAB [Suspect]
     Active Substance: RITUXIMAB
     Indication: Diffuse large B-cell lymphoma
     Dosage: MOST RECENT DOSE PRIOR TO THE SAE ONSET ON 31/MAY/2019?LAST RECEIVED: 19/JUN/2019 (574 MG)?DATE OF M
     Route: 042
     Dates: start: 20190531
  4. DOXORUBICIN [Suspect]
     Active Substance: DOXORUBICIN
     Indication: Diffuse large B-cell lymphoma
     Dosage: MOST RECENT DOSE PRIOR TO THE SAE ONSET ON 31/MAY/2019?LAST RECEIVED: 19/JUN/2019 (77 MG)?DATE OF MO
     Route: 042
     Dates: start: 20190531
  5. CYCLOPHOSPHAMIDE [Suspect]
     Active Substance: CYCLOPHOSPHAMIDE
     Indication: Diffuse large B-cell lymphoma
     Dosage: MOST RECENT DOSE PRIOR TO THE SAE ONSET ON 31/MAY/2019?LAST RECEIVED: 19/JUN/2019 (1150 MG)?DATE OF
     Route: 042
     Dates: start: 20190531
  6. PREDNISONE [Suspect]
     Active Substance: PREDNISONE
     Indication: Diffuse large B-cell lymphoma
     Dosage: ON DAYS 1-5 OF EVERY 21-DAY CYCLE FOR 6 CYCLES?LAST RECEIVED: 21/JUN/2019 (100 MG)?DATE OF MOST RECE
     Route: 042
     Dates: start: 20190530
  7. ONDANSETRON [Concomitant]
     Active Substance: ONDANSETRON
     Indication: Nausea
     Route: 048
     Dates: start: 20190521
  8. ONDANSETRON [Concomitant]
     Active Substance: ONDANSETRON
     Route: 042
     Dates: start: 20190531, end: 20190531
  9. PROCHLORPERAZINE [Concomitant]
     Active Substance: PROCHLORPERAZINE
     Indication: Nausea
     Route: 048
     Dates: start: 20190521
  10. CYCLOBENZAPRINE [Concomitant]
     Active Substance: CYCLOBENZAPRINE
     Indication: Muscle spasms
     Route: 048
     Dates: start: 20190509
  11. MAALOX ANTACID [Concomitant]
     Active Substance: ALUMINUM HYDROXIDE\DIMETHICONE\MAGNESIUM HYDROXIDE
     Indication: Oesophageal discomfort
     Dosage: 1 TBSP (TABLESPOON DOSING UNIT)
     Route: 048
     Dates: start: 20190418
  12. ALLOPURINOL [Concomitant]
     Active Substance: ALLOPURINOL
     Indication: Hyperuricaemia
     Route: 048
     Dates: start: 20190524, end: 20190531
  13. NEULASTA [Concomitant]
     Active Substance: PEGFILGRASTIM
     Indication: Neutropenia
     Route: 058
     Dates: start: 20190601, end: 20190601
  14. NEULASTA [Concomitant]
     Active Substance: PEGFILGRASTIM
     Dosage: GRANULOCYTE-COLONY STIMULATING FACTOR
     Route: 058
     Dates: start: 20190621, end: 20190621
  15. NEULASTA [Concomitant]
     Active Substance: PEGFILGRASTIM
     Dosage: GRANULOCYTE-COLONY STIMULATING FACTOR
     Route: 058
     Dates: start: 20190709, end: 20190709
  16. NEULASTA [Concomitant]
     Active Substance: PEGFILGRASTIM
     Dosage: GRANULOCYTE-COLONY STIMULATING FACTOR
     Route: 058
     Dates: start: 20190731, end: 20190731
  17. OLANZAPINE [Concomitant]
     Active Substance: OLANZAPINE
     Indication: Insomnia
     Route: 048
     Dates: start: 20190613
  18. PALONOSETRON [Concomitant]
     Active Substance: PALONOSETRON
     Route: 042
     Dates: start: 20190619, end: 20191028
  19. FOSAPREPITANT [Concomitant]
     Active Substance: FOSAPREPITANT
     Route: 042
     Dates: start: 20190619, end: 20191028
  20. RBC TRANSFUSION [Concomitant]
     Indication: Anaemia
     Route: 042
     Dates: start: 20190531, end: 20190531
  21. RBC TRANSFUSION [Concomitant]
     Route: 042
     Dates: start: 20190601, end: 20190601
  22. RBC TRANSFUSION [Concomitant]
     Route: 042
     Dates: start: 20190624, end: 20190624
  23. RBC TRANSFUSION [Concomitant]
     Route: 042
     Dates: start: 20190626, end: 20190626
  24. DIPHENHYDRAMINE HYDROCHLORIDE [Concomitant]
     Active Substance: DIPHENHYDRAMINE HYDROCHLORIDE
     Route: 042
     Dates: start: 20190530, end: 20191028
  25. DIPHENHYDRAMINE HYDROCHLORIDE [Concomitant]
     Active Substance: DIPHENHYDRAMINE HYDROCHLORIDE
     Route: 042
     Dates: start: 20190530, end: 20190731
  26. ACETAMINOPHEN [Concomitant]
     Active Substance: ACETAMINOPHEN
     Route: 048
     Dates: start: 20190531, end: 20191028
  27. DEXAMETHASONE [Concomitant]
     Active Substance: DEXAMETHASONE
     Route: 042
     Dates: start: 20190531, end: 20191028
  28. FAMOTIDINE [Concomitant]
     Active Substance: FAMOTIDINE
     Route: 042
     Dates: start: 20190531, end: 20190619
  29. ONDANSETRON HCL [Concomitant]
     Active Substance: ONDANSETRON HYDROCHLORIDE
     Route: 048
     Dates: start: 20190530, end: 20190530
  30. RANITIDINE HYDROCHLORIDE [Concomitant]
     Active Substance: RANITIDINE HYDROCHLORIDE
     Route: 048
     Dates: start: 20190530, end: 20190530
  31. CETIRIZINE HCL [Concomitant]
     Active Substance: CETIRIZINE HYDROCHLORIDE
     Route: 048
     Dates: start: 20190530, end: 20190619
  32. MONTELUKAST SODIUM [Concomitant]
     Active Substance: MONTELUKAST SODIUM
     Route: 048
     Dates: start: 20190530, end: 20190619

REACTIONS (4)
  - Sepsis [Recovered/Resolved]
  - Colitis [Recovered/Resolved]
  - Bacteraemia [Recovered/Resolved]
  - Intestinal perforation [Recovered/Resolved]

NARRATIVE: CASE EVENT DATE: 20190608
